FAERS Safety Report 8612942-1 (Version None)
Quarter: 2012Q3

REPORT INFORMATION
  Report Type: 
  Country: None (occurrence: None)
  Receive Date: 20120822
  Receipt Date: 20120813
  Transmission Date: 20120928
  Serious: Yes (Other)
  Sender: FDA-Public Use
  Company Number: CHPA2012US017177

PATIENT
  Age: 58 Year
  Sex: Female

DRUGS (1)
  1. EXCEDRIN (MIGRAINE) [Suspect]
     Indication: MIGRAINE
     Dosage: 1/3 TABLET PRN, ALMOST EVERYDAY
     Route: 048
     Dates: start: 19890101

REACTIONS (6)
  - ROAD TRAFFIC ACCIDENT [None]
  - INCORRECT DRUG ADMINISTRATION DURATION [None]
  - WRONG TECHNIQUE IN DRUG USAGE PROCESS [None]
  - POST-TRAUMATIC NECK SYNDROME [None]
  - NAUSEA [None]
  - DISEASE RECURRENCE [None]
